FAERS Safety Report 15555444 (Version 2)
Quarter: 2019Q1

REPORT INFORMATION
  Report Type: Spontaneous
  Country: US (occurrence: US)
  Receive Date: 20181026
  Receipt Date: 20190121
  Transmission Date: 20190417
  Serious: Yes (Hospitalization, Other)
  Sender: FDA-Public Use
  Company Number: US-SA-2017SA186667

PATIENT
  Age: 56 Year
  Sex: Female

DRUGS (1)
  1. AUBAGIO [Suspect]
     Active Substance: TERIFLUNOMIDE
     Indication: MULTIPLE SCLEROSIS
     Dosage: 14 MG,QD
     Route: 048
     Dates: start: 20170314

REACTIONS (6)
  - Wound [Unknown]
  - Pulmonary embolism [Unknown]
  - Pain [Not Recovered/Not Resolved]
  - Cardiomegaly [Unknown]
  - Deep vein thrombosis [Unknown]
  - Knee operation [Unknown]

NARRATIVE: CASE EVENT DATE: 2017
